FAERS Safety Report 19662449 (Version 2)
Quarter: 2021Q3

REPORT INFORMATION
  Report Type: Spontaneous
  Country: US (occurrence: US)
  Receive Date: 20210805
  Receipt Date: 20210809
  Transmission Date: 20211014
  Serious: Yes (Other)
  Sender: FDA-Public Use
  Company Number: US-PFIZER INC-2021847193

PATIENT
  Age: 69 Year
  Sex: Female
  Weight: 54.43 kg

DRUGS (1)
  1. PREMARIN [Suspect]
     Active Substance: ESTROGENS, CONJUGATED
     Indication: VAGINAL DISORDER
     Dosage: 0.5 G, 2X/WEEK
     Route: 067
     Dates: start: 2011

REACTIONS (4)
  - Bradykinesia [Unknown]
  - Expired product administered [Unknown]
  - Neuromyopathy [Unknown]
  - Eye disorder [Unknown]
